FAERS Safety Report 4652436-1 (Version None)
Quarter: 2005Q2

REPORT INFORMATION
  Report Type: 
  Country: None (occurrence: None)
  Receive Date: 20050504
  Receipt Date: 20050426
  Transmission Date: 20051028
  Serious: Yes (Hospitalization)
  Sender: FDA-Public Use
  Company Number: US-SANOFI-SYNTHELABO-D01200503130

PATIENT
  Sex: Female
  Weight: 70.5 kg

DRUGS (3)
  1. OXALIPLATIN [Suspect]
     Route: 042
     Dates: start: 20050420, end: 20050420
  2. FLUOROURACIL [Suspect]
     Dosage: 400 MG/M2 IV BOLUS FOLLOWED BY 600 MG/M2 IV CONTINUOUS INFUSION, D1-D2, Q2W
     Route: 042
     Dates: start: 20050420, end: 20050420
  3. LEUCOVORIN CALCIUM [Suspect]
     Route: 042
     Dates: start: 20050420, end: 20050420

REACTIONS (3)
  - CEREBRAL HAEMORRHAGE [None]
  - CEREBROVASCULAR ACCIDENT [None]
  - SUBDURAL HAEMATOMA [None]
